FAERS Safety Report 9899763 (Version 2)
Quarter: 2014Q1

REPORT INFORMATION
  Report Type: Spontaneous
  Country: US (occurrence: US)
  Receive Date: 20140214
  Receipt Date: 20140214
  Transmission Date: 20141002
  Serious: No
  Sender: FDA-Public Use
  Company Number: US-GILEAD-2011-0042164

PATIENT
  Sex: Male

DRUGS (2)
  1. LETAIRIS [Suspect]
     Indication: PULMONARY HYPERTENSION
     Route: 048
     Dates: start: 20101118
  2. TYVASO [Concomitant]

REACTIONS (4)
  - Epistaxis [Unknown]
  - Haemoptysis [Unknown]
  - Exercise tolerance decreased [Unknown]
  - Drug ineffective [Unknown]
